FAERS Safety Report 8058023-X (Version None)
Quarter: 2012Q1

REPORT INFORMATION
  Report Type: 
  Country: None (occurrence: None)
  Receive Date: 20120118
  Receipt Date: 20120118
  Transmission Date: 20120608
  Serious: No
  Sender: FDA-Public Use
  Company Number: None

PATIENT
  Age: 58 Year
  Sex: Male
  Weight: 111.4 kg

DRUGS (3)
  1. HYDROCHLOROTHIAZIDE [Suspect]
     Indication: HYPERTENSION
     Dosage: 25 MG EVERY DAY PO
     Route: 048
     Dates: start: 20100723, end: 20110912
  2. DIVALPROEX SODIUM [Suspect]
     Indication: SCHIZOAFFECTIVE DISORDER
     Dosage: 2500 MG HS PO
     Route: 048
     Dates: start: 20070604
  3. DIVALPROEX SODIUM [Suspect]
     Indication: BIPOLAR DISORDER
     Dosage: 2500 MG HS PO
     Route: 048
     Dates: start: 20070604

REACTIONS (2)
  - INAPPROPRIATE ANTIDIURETIC HORMONE SECRETION [None]
  - HYPONATRAEMIA [None]
